FAERS Safety Report 5875334-4 (Version None)
Quarter: 2008Q3

REPORT INFORMATION
  Report Type: 
  Country: None (occurrence: None)
  Receive Date: 20080904
  Receipt Date: 20080819
  Transmission Date: 20090109
  Serious: Yes (Hospitalization)
  Sender: FDA-Public Use
  Company Number: 2008BI007856

PATIENT
  Age: 28 Year
  Sex: Female

DRUGS (4)
  1. AVONEX [Suspect]
     Indication: RELAPSING-REMITTING MULTIPLE SCLEROSIS
     Dosage: 30 UG; QW; IM
     Route: 030
     Dates: start: 20020619, end: 20080308
  2. BERLTHROX [Concomitant]
  3. ST JOHNS WORT [Concomitant]
  4. PREDNISOLON [Concomitant]

REACTIONS (6)
  - AUTOIMMUNE HEPATITIS [None]
  - COAGULOPATHY [None]
  - FATIGUE [None]
  - MULTIPLE SCLEROSIS RELAPSE [None]
  - PERIPHERAL COLDNESS [None]
  - VERTIGO [None]
